FAERS Safety Report 5461214-5 (Version None)
Quarter: 2007Q3

REPORT INFORMATION
  Report Type: 
  Country: None (occurrence: None)
  Receive Date: 20070920
  Receipt Date: 20060815
  Transmission Date: 20080115
  Serious: No
  Sender: FDA-Public Use
  Company Number: A0616499A

PATIENT
  Age: 55 Year
  Sex: Female

DRUGS (1)
  1. ABREVA [Suspect]
     Dates: start: 20060812, end: 20060812

REACTIONS (8)
  - HYPERSENSITIVITY [None]
  - LIP BLISTER [None]
  - LIP PAIN [None]
  - LIP SWELLING [None]
  - LOCAL SWELLING [None]
  - LYMPHADENOPATHY [None]
  - ORAL HERPES [None]
  - PHARYNGOLARYNGEAL PAIN [None]
